FAERS Safety Report 16153529 (Version 1)
Quarter: 2019Q2

REPORT INFORMATION
  Report Type: Spontaneous
  Country: AT (occurrence: SG)
  Receive Date: 20190403
  Receipt Date: 20190403
  Transmission Date: 20190711
  Serious: Yes (Other)
  Sender: FDA-Public Use
  Company Number: AT-BAYER-2019-059691

PATIENT
  Age: 66 Year
  Sex: Male
  Weight: 108 kg

DRUGS (2)
  1. NEXAVAR [Suspect]
     Active Substance: SORAFENIB
     Indication: HEPATOCELLULAR CARCINOMA
     Dosage: 2 X 400 MG/D
     Dates: start: 201506, end: 2015
  2. STIVARGA [Suspect]
     Active Substance: REGORAFENIB
     Indication: HEPATOCELLULAR CARCINOMA
     Dosage: 120 MG/D
     Dates: start: 201701, end: 201701

REACTIONS (5)
  - Metastases to spine [Not Recovered/Not Resolved]
  - Metastases to spine [None]
  - Hepatocellular carcinoma [None]
  - Skin toxicity [None]
  - Erythema multiforme [None]

NARRATIVE: CASE EVENT DATE: 201506
